FAERS Safety Report 5415627-8 (Version None)
Quarter: 2007Q3

REPORT INFORMATION
  Report Type: 
  Country: None (occurrence: None)
  Receive Date: 20070815
  Receipt Date: 20070808
  Transmission Date: 20080115
  Serious: Yes (Other)
  Sender: FDA-Public Use
  Company Number: ITWYE478222DEC03

PATIENT
  Sex: Male
  Weight: 72 kg

DRUGS (9)
  1. TRETINOIN [Suspect]
     Indication: ACUTE PROMYELOCYTIC LEUKAEMIA
     Dates: start: 20030904, end: 20030918
  2. TRETINOIN [Suspect]
     Dates: start: 20031204, end: 20031218
  3. MERCAPTOPURINE [Suspect]
     Indication: ACUTE PROMYELOCYTIC LEUKAEMIA
     Route: 048
     Dates: start: 20030919, end: 20031004
  4. MERCAPTOPURINE [Suspect]
     Route: 048
     Dates: start: 20031005, end: 20031009
  5. MERCAPTOPURINE [Suspect]
     Route: 048
     Dates: start: 20031010, end: 20031203
  6. MERCAPTOPURINE [Suspect]
     Route: 048
     Dates: start: 20040123
  7. METHOTREXATE [Suspect]
     Indication: ACUTE PROMYELOCYTIC LEUKAEMIA
     Dates: start: 20030919, end: 20031203
  8. METHOTREXATE [Suspect]
     Dates: start: 20040123
  9. FOLIC ACID [Concomitant]
     Route: 048
     Dates: start: 20031204

REACTIONS (1)
  - APLASIA [None]
